FAERS Safety Report 8534212-2 (Version None)
Quarter: 2012Q3

REPORT INFORMATION
  Report Type: 
  Country: None (occurrence: None)
  Receive Date: 20120711
  Receipt Date: 20120703
  Transmission Date: 20120928
  Serious: Yes (Other)
  Sender: FDA-Public Use
  Company Number: ABR_00307_2011

PATIENT
  Sex: Female
  Weight: 68.0396 kg

DRUGS (2)
  1. ERYTHROMYCIN [Suspect]
     Indication: PSORIASIS
     Dosage: DF
     Dates: start: 19910101, end: 19940101
  2. ERYTHROMYCIN [Suspect]
     Indication: STREPTOCOCCUS TEST POSITIVE
     Dosage: DF
     Dates: start: 19910101, end: 19940101

REACTIONS (3)
  - ANAPHYLACTIC REACTION [None]
  - DYSPNOEA [None]
  - THROAT TIGHTNESS [None]
